FAERS Safety Report 6330321-7 (Version None)
Quarter: 2009Q3

REPORT INFORMATION
  Report Type: 
  Country: None (occurrence: None)
  Receive Date: 20090826
  Receipt Date: 20090826
  Transmission Date: 20100115
  Serious: Yes (Hospitalization)
  Sender: FDA-Public Use
  Company Number: None

PATIENT
  Age: 50 Year
  Sex: Female
  Weight: 95.7 kg

DRUGS (17)
  1. ABRAXANE [Suspect]
     Indication: BREAST CANCER METASTATIC
     Dosage: 203 MG WEEKLY X 3 IV
     Route: 042
     Dates: start: 20090520, end: 20090812
  2. CARBOPLATIN [Suspect]
     Indication: BREAST CANCER METASTATIC
     Dosage: 242 MG WEEKLY X 3 IV
     Route: 042
     Dates: start: 20090520, end: 20090812
  3. ROPINOROLE [Concomitant]
  4. SIMVASTATIN [Concomitant]
  5. ZYRTEC [Concomitant]
  6. TYLENOL (CAPLET) [Concomitant]
  7. DECADRON [Concomitant]
  8. ZOFRAN [Concomitant]
  9. ATIVAN [Concomitant]
  10. COMPAZINE [Concomitant]
  11. MAGIC MOUTHWASH [Concomitant]
  12. PRILOSEC [Concomitant]
  13. NEXIUM [Concomitant]
  14. BENADRYL [Concomitant]
  15. MIRALAX [Concomitant]
  16. DULCOLAX [Concomitant]
  17. VITAMIN D [Concomitant]

REACTIONS (1)
  - CHEST PAIN [None]
